FAERS Safety Report 4381432-7 (Version None)
Quarter: 2004Q2

REPORT INFORMATION
  Report Type: 
  Country: None (occurrence: None)
  Receive Date: 20040617
  Receipt Date: 20040617
  Transmission Date: 20050107
  Serious: Yes (Life-Threatening)
  Sender: FDA-Public Use
  Company Number: None

PATIENT
  Age: 73 Year
  Sex: Male
  Weight: 91 kg

DRUGS (1)
  1. CETUXIMAB-ERBITUX- [Suspect]
     Indication: RECTAL CANCER
     Dosage: 20 MG IV
     Route: 042
     Dates: start: 20040507, end: 20040507

REACTIONS (6)
  - ABDOMINAL PAIN [None]
  - ANXIETY [None]
  - DYSPNOEA [None]
  - FACE OEDEMA [None]
  - FLUSHING [None]
  - VENTRICULAR EXTRASYSTOLES [None]
